FAERS Safety Report 18017178 (Version 2)
Quarter: 2021Q1

REPORT INFORMATION
  Report Type: Spontaneous
  Country: FR (occurrence: FR)
  Receive Date: 20200713
  Receipt Date: 20210205
  Transmission Date: 20210419
  Serious: Yes (Other)
  Sender: FDA-Public Use
  Company Number: NVSC2020FR190797

PATIENT
  Age: 83 Year
  Sex: Female
  Weight: 53 kg

DRUGS (11)
  1. LETROZOLE. [Suspect]
     Active Substance: LETROZOLE
     Indication: HORMONE THERAPY
     Dosage: 2.5 MG
     Route: 048
     Dates: start: 20190729
  2. IBRANCE [Suspect]
     Active Substance: PALBOCICLIB
     Dosage: 100 MG, 1X/DAY
     Route: 065
     Dates: start: 20190905, end: 20190925
  3. IBRANCE [Suspect]
     Active Substance: PALBOCICLIB
     Dosage: 75 MG, 1X/DAY 3 WEEKS OUT OF 4
     Route: 065
     Dates: start: 20200331, end: 20200420
  4. IBRANCE [Suspect]
     Active Substance: PALBOCICLIB
     Dosage: 75 MG, 1X/DAY 3 WEEKS ON/ 2 WEEKS OFF
     Route: 065
     Dates: start: 20191114, end: 20191204
  5. LOSARTAN. [Concomitant]
     Active Substance: LOSARTAN
     Indication: HYPERTENSION
     Dosage: 5 MG
     Route: 048
  6. IBRANCE [Suspect]
     Active Substance: PALBOCICLIB
     Dosage: 75 MG, QD (ONCE A DAY CYCLIC 3 WEEKS OUT OF 4)
     Route: 065
     Dates: start: 20191217, end: 20200106
  7. IBRANCE [Suspect]
     Active Substance: PALBOCICLIB
     Dosage: 75 MG, QD (1X/DAY 3 WEEKS OUT OF 4)
     Route: 065
     Dates: start: 20200221, end: 20200312
  8. IBRANCE [Suspect]
     Active Substance: PALBOCICLIB
     Indication: BREAST CANCER
     Dosage: 125 MG, 1X/DAY
     Route: 065
     Dates: start: 20190729, end: 20190818
  9. IBRANCE [Suspect]
     Active Substance: PALBOCICLIB
     Dosage: 100 MG, 1X/DAY
     Route: 065
     Dates: start: 20191008, end: 20191028
  10. IBRANCE [Suspect]
     Active Substance: PALBOCICLIB
     Dosage: 75 MG, ONCE A DAY CYCLIC 3 WEEKS OUT OF 4
     Route: 065
     Dates: start: 20200121, end: 20200210
  11. IBRANCE [Suspect]
     Active Substance: PALBOCICLIB
     Dosage: 75 MG, QD (75 MG, 1X/DAY 3 WEEKS OUT OF 4)
     Route: 065
     Dates: start: 20200225, end: 20200316

REACTIONS (10)
  - Neutropenia [Recovered/Resolved]
  - Neutropenia [Recovered/Resolved]
  - Amnesia [Not Recovered/Not Resolved]
  - Asthenia [Recovering/Resolving]
  - Neutropenia [Recovered/Resolved]
  - Neutropenia [Recovered/Resolved]
  - Neutropenia [Recovered/Resolved]
  - Neutropenia [Recovered/Resolved]
  - Neutropenia [Recovered/Resolved]
  - Neutropenia [Recovered/Resolved]

NARRATIVE: CASE EVENT DATE: 20190826
